FAERS Safety Report 7920488-9 (Version None)
Quarter: 2011Q4

REPORT INFORMATION
  Report Type: 
  Country: None (occurrence: None)
  Receive Date: 20111117
  Receipt Date: 20111109
  Transmission Date: 20120403
  Serious: Yes (Death, Hospitalization, Other)
  Sender: FDA-Public Use
  Company Number: PHEH2010US03414

PATIENT
  Sex: Female

DRUGS (24)
  1. AREDIA [Suspect]
     Dates: start: 20020710
  2. AROMASIN [Concomitant]
  3. PRILOSEC [Concomitant]
  4. LISINOPRIL [Concomitant]
  5. EFFEXOR [Concomitant]
  6. ZOFRAN [Concomitant]
     Dosage: 4 MG, PRN
  7. FASLODEX [Concomitant]
  8. HYDROCHLOROTHIAZIDE [Concomitant]
  9. TRAMADOL HCL [Concomitant]
  10. SYNTHROID [Concomitant]
  11. FENTANYL [Concomitant]
  12. TAMOXIFEN CITRATE [Concomitant]
  13. ACETAMINOPHEN [Concomitant]
  14. NIFEDIPINE [Concomitant]
  15. NEXIUM [Concomitant]
  16. LOPRESSOR [Concomitant]
  17. PROCRIT                            /00909301/ [Concomitant]
  18. PHENERGAN [Concomitant]
     Dosage: 25 MG, PRN
     Route: 048
  19. LEVOTHYROXINE SODIUM [Concomitant]
  20. ACYCLOVIR [Concomitant]
  21. FEMARA [Concomitant]
  22. LASIX [Concomitant]
  23. PROTONIX [Concomitant]
     Dosage: 40 MG, QD
     Route: 048
  24. REGLAN [Concomitant]

REACTIONS (69)
  - OSTEONECROSIS OF JAW [None]
  - ANXIETY [None]
  - SPINAL CORD COMPRESSION [None]
  - PLEURAL EFFUSION [None]
  - CEREBRAL ATROPHY [None]
  - CONFUSIONAL STATE [None]
  - MENTAL STATUS CHANGES [None]
  - GINGIVAL PAIN [None]
  - VAGINAL LESION [None]
  - DECREASED APPETITE [None]
  - ASCITES [None]
  - HYPOTHYROIDISM [None]
  - HAEMORRHOIDS [None]
  - PAIN [None]
  - ANHEDONIA [None]
  - GRANULOMA [None]
  - BURNS FIRST DEGREE [None]
  - CELLULITIS [None]
  - EXPOSED BONE IN JAW [None]
  - METASTASES TO LIVER [None]
  - GINGIVAL ULCERATION [None]
  - CONSTIPATION [None]
  - GASTROINTESTINAL HAEMORRHAGE [None]
  - CHEST PAIN [None]
  - ABDOMINAL DISTENSION [None]
  - TACHYCARDIA [None]
  - INJURY [None]
  - HIATUS HERNIA [None]
  - BACK PAIN [None]
  - ARTHRALGIA [None]
  - ANAEMIA [None]
  - OEDEMA PERIPHERAL [None]
  - URINARY INCONTINENCE [None]
  - URINARY TRACT INFECTION [None]
  - HALLUCINATION, VISUAL [None]
  - GINGIVAL OEDEMA [None]
  - VULVAL LEUKOPLAKIA [None]
  - ATELECTASIS [None]
  - LACRIMATION INCREASED [None]
  - HEPATIC CIRRHOSIS [None]
  - DYSPHONIA [None]
  - OSTEOARTHRITIS [None]
  - RADIATION OESOPHAGITIS [None]
  - LICHEN SCLEROSUS [None]
  - DEHYDRATION [None]
  - DYSURIA [None]
  - DRY EYE [None]
  - DEATH [None]
  - HEPATIC LESION [None]
  - AZOTAEMIA [None]
  - LYMPHADENOPATHY MEDIASTINAL [None]
  - HAEMATURIA [None]
  - PAIN IN JAW [None]
  - PULMONARY GRANULOMA [None]
  - ABDOMINAL PAIN [None]
  - SEPSIS [None]
  - SPINAL COMPRESSION FRACTURE [None]
  - SYNOVIAL CYST [None]
  - SMALL INTESTINAL OBSTRUCTION [None]
  - INGUINAL HERNIA STRANGULATED [None]
  - SPINAL COLUMN STENOSIS [None]
  - BLADDER DIVERTICULUM [None]
  - GASTROOESOPHAGEAL REFLUX DISEASE [None]
  - STREPTOCOCCAL INFECTION [None]
  - AGRANULOCYTOSIS [None]
  - DIARRHOEA [None]
  - VAGINAL HAEMORRHAGE [None]
  - PATHOLOGICAL FRACTURE [None]
  - RENAL CYST [None]
